FAERS Safety Report 20469191 (Version 1)
Quarter: 2022Q1

REPORT INFORMATION
  Report Type: Spontaneous
  Country: GB (occurrence: None)
  Receive Date: 20220212
  Receipt Date: 20220212
  Transmission Date: 20220423
  Serious: Yes (Disabling)
  Sender: FDA-Public Use
  Company Number: None

PATIENT
  Age: 57 Year
  Sex: Male
  Weight: 73 kg

DRUGS (16)
  1. TRUVADA [Suspect]
     Active Substance: EMTRICITABINE\TENOFOVIR DISOPROXIL FUMARATE
     Indication: HIV infection
     Dates: start: 20120101, end: 20211101
  2. DOLUTEGRAVIR [Suspect]
     Active Substance: DOLUTEGRAVIR
  3. CREON [Concomitant]
     Active Substance: PANCRELIPASE AMYLASE\PANCRELIPASE LIPASE\PANCRELIPASE PROTEASE
  4. FENBID FORTE [Concomitant]
  5. ROBAXIN [Concomitant]
     Active Substance: METHOCARBAMOL
  6. PREDNISONE [Concomitant]
     Active Substance: PREDNISONE
  7. NAPROXEN [Concomitant]
     Active Substance: NAPROXEN
  8. SELOFALK [Concomitant]
  9. MORPHINE [Concomitant]
     Active Substance: MORPHINE
  10. MORPHINE SULFATE [Concomitant]
     Active Substance: MORPHINE SULFATE
  11. OMEPRAZOLE [Concomitant]
     Active Substance: OMEPRAZOLE
  12. RELAXIT MICRO ENEMA [Concomitant]
  13. LACTULOSE [Concomitant]
     Active Substance: LACTULOSE
  14. POLYETHYLENE GLYCOL 3350\POTASSIUM CHLORIDE\SODIUM BICARBONATE\SODIUM [Concomitant]
     Active Substance: POLYETHYLENE GLYCOL 3350\POTASSIUM CHLORIDE\SODIUM BICARBONATE\SODIUM CHLORIDE
  15. FOLIC ACID\IRON\MINERALS\VITAMINS [Concomitant]
     Active Substance: FOLIC ACID\IRON\MINERALS\VITAMINS
  16. IRON TABLETS [Concomitant]

REACTIONS (9)
  - Dry eye [None]
  - Arthralgia [None]
  - Nausea [None]
  - Vomiting [None]
  - Muscle atrophy [None]
  - Chest pain [None]
  - Cold sweat [None]
  - Fatigue [None]
  - Blood potassium increased [None]

NARRATIVE: CASE EVENT DATE: 20211108
